FAERS Safety Report 11703532 (Version 1)
Quarter: 2015Q4

REPORT INFORMATION
  Report Type: Spontaneous
  Country: VE (occurrence: VE)
  Receive Date: 20151105
  Receipt Date: 20151105
  Transmission Date: 20160304
  Serious: Yes (Hospitalization)
  Sender: FDA-Public Use
  Company Number: PHHY2015VE144748

PATIENT
  Age: 25 Year
  Sex: Female

DRUGS (4)
  1. KOPODEX [Concomitant]
     Active Substance: LEVETIRACETAM
     Indication: SEIZURE
     Dosage: 1000 MG, QD
     Route: 065
  2. TRILEPTAL [Suspect]
     Active Substance: OXCARBAZEPINE
     Indication: SEIZURE
     Dosage: 600 MG, QD
     Route: 048
     Dates: start: 2003, end: 20151020
  3. RIVOTRIL [Concomitant]
     Active Substance: CLONAZEPAM
     Indication: SEIZURE
     Dosage: 2 MG, QD
     Route: 065
  4. QUETIDIN [Concomitant]
     Indication: SEIZURE
     Dosage: 50 MG, QD
     Route: 065

REACTIONS (6)
  - General physical health deterioration [Unknown]
  - Fall [Unknown]
  - Dehydration [Unknown]
  - Vomiting [Unknown]
  - Seizure [Unknown]
  - Syncope [Unknown]

NARRATIVE: CASE EVENT DATE: 20151031
